FAERS Safety Report 9186374 (Version 1)
Quarter: 2013Q1

REPORT INFORMATION
  Report Type: Spontaneous
  Country: IT (occurrence: IT)
  Receive Date: 20130325
  Receipt Date: 20130325
  Transmission Date: 20140127
  Serious: Yes (Other)
  Sender: FDA-Public Use
  Company Number: IT-MYLANLABS-2013S1005675

PATIENT
  Age: 24 Year
  Sex: Female
  Weight: 50 kg

DRUGS (2)
  1. RANITIDINE HYDROCHLORIDE [Suspect]
     Indication: GASTRITIS
     Route: 048
     Dates: start: 20130119, end: 20130119
  2. BUSCOPAN [Concomitant]
     Indication: ABDOMINAL PAIN
     Dates: start: 20130119, end: 20130119

REACTIONS (3)
  - Angioedema [Recovered/Resolved]
  - Urticaria [Recovered/Resolved]
  - Pruritus generalised [Recovered/Resolved]
